FAERS Safety Report 7248901-3 (Version None)
Quarter: 2011Q1

REPORT INFORMATION
  Report Type: 
  Country: None (occurrence: None)
  Receive Date: 20110128
  Receipt Date: 20100407
  Transmission Date: 20110831
  Serious: Yes (Other)
  Sender: FDA-Public Use
  Company Number: US-BAYER-201019021NA

PATIENT
  Age: 85 Year
  Sex: Female

DRUGS (1)
  1. AVELOX [Suspect]
     Indication: SINUSITIS BACTERIAL
     Route: 048
     Dates: start: 20100401, end: 20100401

REACTIONS (4)
  - ANXIETY [None]
  - RESTLESSNESS [None]
  - NERVOUSNESS [None]
  - TREMOR [None]
